FAERS Safety Report 4668525-1 (Version None)
Quarter: 2005Q2

REPORT INFORMATION
  Report Type: 
  Country: None (occurrence: None)
  Receive Date: 20050519
  Receipt Date: 20050512
  Transmission Date: 20051028
  Serious: Yes (Hospitalization, Disabling)
  Sender: FDA-Public Use
  Company Number: 200511042BCC

PATIENT
  Age: 75 Year
  Sex: Female

DRUGS (1)
  1. ALEVE [Suspect]
     Indication: FEELING ABNORMAL
     Dosage: 220 MG, ONCE, ORAL
     Route: 048
     Dates: start: 20050109

REACTIONS (1)
  - CEREBROVASCULAR ACCIDENT [None]
